FAERS Safety Report 5132549-0 (Version None)
Quarter: 2006Q4

REPORT INFORMATION
  Report Type: 
  Country: None (occurrence: None)
  Receive Date: 20061020
  Receipt Date: 20061020
  Transmission Date: 20070319
  Serious: No
  Sender: FDA-Public Use
  Company Number: None

PATIENT
  Age: 27 Year
  Sex: Female

DRUGS (1)
  1. LAMICTAL [Suspect]

REACTIONS (5)
  - NASOPHARYNGITIS [None]
  - RASH [None]
  - RHINALGIA [None]
  - SINUS CONGESTION [None]
  - SINUS HEADACHE [None]
